FAERS Safety Report 24569359 (Version 1)
Quarter: 2024Q4

REPORT INFORMATION
  Report Type: Report from Study
  Country: US (occurrence: US)
  Receive Date: 20241031
  Receipt Date: 20241031
  Transmission Date: 20250115
  Serious: Yes (Other)
  Sender: RECORDATI
  Company Number: US-ORPHANEU-2024008522

PATIENT

DRUGS (3)
  1. PASIREOTIDE [Suspect]
     Active Substance: PASIREOTIDE
     Indication: Neuroendocrine tumour
     Dosage: 10 MG, QM
     Dates: start: 20240708, end: 202407
  2. PASIREOTIDE [Suspect]
     Active Substance: PASIREOTIDE
     Indication: Off label use
     Dosage: 20 MG, QM
     Dates: start: 202408, end: 202408
  3. PASIREOTIDE [Suspect]
     Active Substance: PASIREOTIDE
     Dosage: 40 MG, QM
     Dates: start: 202409

REACTIONS (4)
  - Hypoglycaemic unconsciousness [Recovered/Resolved]
  - Hypoglycaemic seizure [Recovered/Resolved]
  - Hypoglycaemia [Recovered/Resolved]
  - Off label use [Recovered/Resolved]

NARRATIVE: CASE EVENT DATE: 20240701
